FAERS Safety Report 8608413 (Version 3)
Quarter: 2013Q1

REPORT INFORMATION
  Report Type: Report from Study
  Country: US (occurrence: US)
  Receive Date: 20120611
  Receipt Date: 20130326
  Transmission Date: 20140127
  Serious: Yes (Death, Hospitalization, Other)
  Sender: FDA-Public Use
  Company Number: US-ROCHE-1076459

PATIENT
  Age: 61 Year
  Sex: Male
  Weight: 45.4 kg

DRUGS (4)
  1. XELODA [Suspect]
     Indication: OESOPHAGEAL CARCINOMA
     Route: 048
     Dates: start: 20120419, end: 20120516
  2. XELODA [Suspect]
     Route: 048
     Dates: start: 20120418, end: 20120714
  3. XELODA [Suspect]
     Route: 048
     Dates: start: 20120419, end: 20121101
  4. EPIRUBICIN [Suspect]
     Indication: OESOPHAGEAL CARCINOMA
     Route: 065
     Dates: start: 20120418

REACTIONS (5)
  - Death [Fatal]
  - Dehydration [Unknown]
  - Pancreatitis [Not Recovered/Not Resolved]
  - Diarrhoea [Not Recovered/Not Resolved]
  - Neoplasm [Not Recovered/Not Resolved]
